FAERS Safety Report 8274170-1 (Version None)
Quarter: 2012Q2

REPORT INFORMATION
  Report Type: 
  Country: None (occurrence: None)
  Receive Date: 20120411
  Receipt Date: 20120403
  Transmission Date: 20120825
  Serious: Yes (Other)
  Sender: FDA-Public Use
  Company Number: ES-UCBSA-054669

PATIENT
  Age: 48 Year
  Sex: Male
  Weight: 90 kg

DRUGS (20)
  1. CUBICIN [Suspect]
     Route: 042
     Dates: start: 20110910, end: 20110914
  2. NOXAFIL [Suspect]
     Route: 048
     Dates: start: 20110902, end: 20110917
  3. ORBENIN CAP [Suspect]
     Route: 048
     Dates: start: 20110831, end: 20110916
  4. UROKINASE VEDIM [Suspect]
     Dates: start: 20110915, end: 20110915
  5. ALLOPURINOL [Suspect]
     Route: 048
     Dates: start: 20110825, end: 20110908
  6. ACETAMINOPHEN [Suspect]
     Route: 042
     Dates: start: 20110825, end: 20110908
  7. MAXIPIME [Suspect]
     Route: 042
     Dates: start: 20110825, end: 20110903
  8. ACYCLOVIR [Suspect]
     Route: 042
     Dates: start: 20110911, end: 20110913
  9. FUROSEMIDE [Suspect]
     Route: 042
     Dates: start: 20110908, end: 20110926
  10. TARGOCID [Suspect]
     Route: 042
     Dates: start: 20110906, end: 20110919
  11. ENOXAPARIN SODIUM [Suspect]
     Route: 058
     Dates: start: 20110825, end: 20110826
  12. DUPHALAC [Suspect]
     Route: 048
     Dates: start: 20110831, end: 20110914
  13. HEPARIN SODIUM [Suspect]
     Route: 058
     Dates: start: 20110907, end: 20110930
  14. MEROPENEM [Suspect]
     Route: 042
     Dates: start: 20110905, end: 20110914
  15. POLARAMINE [Suspect]
     Dosage: AS NEEDED
     Route: 048
     Dates: start: 20110916, end: 20110922
  16. OMEPRAZOLE [Suspect]
     Route: 048
     Dates: start: 20110825, end: 20111007
  17. TRETINOIN [Suspect]
     Route: 048
     Dates: start: 20110826, end: 20111007
  18. LEVOFLOXACIN [Suspect]
     Route: 048
     Dates: start: 20110918, end: 20110928
  19. AMBISOME [Suspect]
     Route: 042
     Dates: start: 20110916, end: 20110926
  20. TAZOCEL [Suspect]
     Route: 042
     Dates: start: 20110914, end: 20110919

REACTIONS (1)
  - MYOSITIS [None]
